FAERS Safety Report 18275463 (Version 1)
Quarter: 2020Q3

REPORT INFORMATION
  Report Type: Spontaneous
  Country: AR (occurrence: AR)
  Receive Date: 20200917
  Receipt Date: 20200917
  Transmission Date: 20201103
  Serious: Yes (Disabling)
  Sender: FDA-Public Use
  Company Number: AR-SA-2020SA251385

PATIENT

DRUGS (2)
  1. AUBAGIO [Suspect]
     Active Substance: TERIFLUNOMIDE
     Indication: MULTIPLE SCLEROSIS
     Dosage: 14 MG, QD
  2. COLESTIRAMINA [Concomitant]
     Active Substance: CHOLESTYRAMINE
     Dosage: 50 MG

REACTIONS (2)
  - Gait inability [Unknown]
  - Dysarthria [Unknown]

NARRATIVE: CASE EVENT DATE: 202008
